FAERS Safety Report 16935377 (Version 1)
Quarter: 2019Q4

REPORT INFORMATION
  Report Type: Spontaneous
  Country: US (occurrence: US)
  Receive Date: 20190827
  Receipt Date: 20190827
  Transmission Date: 20200122
  Serious: Yes (Hospitalization)
  Sender: FDA-Public Use
  Company Number: None

PATIENT
  Age: 93 Year
  Sex: Male
  Weight: 79.38 kg

DRUGS (1)
  1. CHLORTHALIDONE. [Suspect]
     Active Substance: CHLORTHALIDONE
     Indication: HYPERTENSION
     Route: 048
     Dates: start: 20190107, end: 20190724

REACTIONS (8)
  - Asthenia [None]
  - Electrocardiogram abnormal [None]
  - Constipation [None]
  - Hypotension [None]
  - Fatigue [None]
  - Hyponatraemia [None]
  - Dizziness [None]
  - Mental status changes [None]

NARRATIVE: CASE EVENT DATE: 20190724
